FAERS Safety Report 7762115-X (Version None)
Quarter: 2011Q3

REPORT INFORMATION
  Report Type: 
  Country: None (occurrence: None)
  Receive Date: 20110920
  Receipt Date: 20110914
  Transmission Date: 20111222
  Serious: Yes (Death, Hospitalization)
  Sender: FDA-Public Use
  Company Number: ES-PFIZER INC-2011153948

PATIENT
  Age: 74 Year
  Sex: Male

DRUGS (22)
  1. MORPHINE SULFATE [Concomitant]
     Indication: PAIN
     Dosage: 20 MG, EVERY 4 HOURS
     Route: 048
     Dates: start: 20110625, end: 20110701
  2. ALLOPURINOL [Concomitant]
     Indication: HYPERURICAEMIA
     Dosage: 300 MG, 1X/DAY
     Route: 048
     Dates: start: 20110517, end: 20110629
  3. AMLODIPINE [Concomitant]
     Indication: HYPERURICAEMIA
     Dosage: 10 MG, 1X/DAY
     Route: 048
     Dates: start: 20110517, end: 20110709
  4. DEXAMETHASONE [Concomitant]
     Indication: SPINAL CORD COMPRESSION
     Dosage: 4 MG, 1X/DAY
     Route: 048
     Dates: start: 20110628, end: 20110704
  5. ENALAPRIL [Concomitant]
     Indication: HYPERTENSION
     Dosage: 10 MG, 1X/DAY
     Route: 048
     Dates: start: 20110517, end: 20110709
  6. INSULIN DETEMIR [Concomitant]
     Indication: DIABETES MELLITUS
     Dosage: 10 IU, 1X/DAY
     Route: 058
     Dates: start: 20110625, end: 20110630
  7. ENOXAPARIN SODIUM [Concomitant]
     Dosage: 40 MG, 1X/DAY
     Dates: start: 20110615, end: 20110705
  8. LORAZEPAM [Concomitant]
     Indication: ANXIOLYTIC THERAPY
     Dosage: 1 MG, 1X/DAY
     Route: 048
     Dates: start: 20110523, end: 20110704
  9. ENEMA CASEN [Concomitant]
     Indication: CONSTIPATION
     Dosage: 1 DF, 3X/DAY
     Route: 054
     Dates: start: 20110608, end: 20110705
  10. ENOXAPARIN SODIUM [Concomitant]
     Indication: THROMBOSIS PROPHYLAXIS
     Dosage: 5 UNKNOWN
     Route: 061
     Dates: start: 20110621, end: 20110704
  11. OMEPRAZOLE [Concomitant]
     Indication: ANTACID THERAPY
     Dosage: 20 MG, 2X/DAY
     Route: 048
     Dates: start: 20110517, end: 20110704
  12. PARACETAMOL [Concomitant]
     Indication: PYREXIA
     Dosage: 1 G, 3X/DAY
     Route: 048
     Dates: start: 20110619, end: 20110704
  13. TEMSIROLIMUS [Suspect]
     Indication: RENAL CANCER METASTATIC
     Dosage: 1 DOSE ONLY
     Route: 042
     Dates: start: 20110628, end: 20110628
  14. GRANISETRON [Concomitant]
     Indication: PROPHYLAXIS OF NAUSEA AND VOMITING
     Dosage: 1 MG, SINGLE
     Route: 051
     Dates: start: 20110628, end: 20110628
  15. INSULINE RAPITARD [Concomitant]
     Indication: DIABETES MELLITUS
     Dosage: 1 IU, 3X/DAY
     Route: 058
     Dates: start: 20110519, end: 20110705
  16. LACTULOSE [Concomitant]
     Indication: CONSTIPATION
     Dosage: 15 ML, 2X/DAY
     Route: 048
     Dates: start: 20110520, end: 20110705
  17. PREGABALIN [Concomitant]
     Indication: NEURALGIA
     Dosage: 75 MG, 2X/DAY
     Route: 048
     Dates: start: 20110517, end: 20110704
  18. DEXCHLORPHENIRAMINE [Concomitant]
     Indication: PREMEDICATION
     Dosage: 5 MG, SINGLE
     Route: 042
     Dates: start: 20110628, end: 20110628
  19. INSULIN DETEMIR [Concomitant]
     Dosage: 18 IU, 1X/DAY
     Route: 058
     Dates: start: 20110613, end: 20110704
  20. DOXAZOSIN [Concomitant]
     Indication: HYPERTENSION
     Dosage: 4 MG, 3X/DAY
     Route: 048
     Dates: start: 20110517, end: 20110709
  21. FENTANYL [Concomitant]
     Indication: PAIN
     Dosage: 100 MG, EVERY 20 HOURS
     Route: 062
     Dates: start: 20110608, end: 20110705
  22. FUROSEMIDE [Concomitant]
     Indication: OEDEMA
     Dosage: 40 UNK, 1X/DAY
     Route: 048
     Dates: start: 20110619, end: 20110704

REACTIONS (7)
  - FEELING ABNORMAL [None]
  - PNEUMONIA [None]
  - NEOPLASM PROGRESSION [None]
  - DEPRESSED LEVEL OF CONSCIOUSNESS [None]
  - SEPSIS [None]
  - HYPERTHERMIA [None]
  - RENAL CANCER STAGE IV [None]
